FAERS Safety Report 4910662-8 (Version None)
Quarter: 2006Q1

REPORT INFORMATION
  Report Type: 
  Country: None (occurrence: None)
  Receive Date: 20060210
  Receipt Date: 20060210
  Transmission Date: 20060701
  Serious: No
  Sender: FDA-Public Use
  Company Number: None

PATIENT
  Age: 17 Year
  Sex: Male

DRUGS (2)
  1. PENTOTHAL [Suspect]
     Dosage: POWDER FOR RECONSTITUTION GLASS/VIAL
  2. NEMBUTAL [Suspect]
     Dosage: INJECTABLE GLASS VIAL 50 ML VIAL

REACTIONS (3)
  - DRUG DISPENSING ERROR [None]
  - MEDICATION ERROR [None]
  - WRONG DRUG ADMINISTERED [None]
